FAERS Safety Report 18324798 (Version 2)
Quarter: 2020Q4

REPORT INFORMATION
  Report Type: Spontaneous
  Country: BE (occurrence: BE)
  Receive Date: 20200929
  Receipt Date: 20201014
  Transmission Date: 20210113
  Serious: Yes (Death)
  Sender: FDA-Public Use
  Company Number: BE-PFIZER INC-2020374105

PATIENT
  Age: 61 Year

DRUGS (1)
  1. BESPONSA [Suspect]
     Active Substance: INOTUZUMAB OZOGAMICIN
     Indication: ACUTE LYMPHOCYTIC LEUKAEMIA
     Dosage: 1 CYCLE, SALVAGE 3 OR LATER THERAPY, WITH THE AIM OF BRIDGING THE PATIENT TO SCT

REACTIONS (2)
  - Neoplasm progression [Fatal]
  - General physical health deterioration [Unknown]
